FAERS Safety Report 5109843-2 (Version None)
Quarter: 2006Q3

REPORT INFORMATION
  Report Type: 
  Country: None (occurrence: None)
  Receive Date: 20060918
  Receipt Date: 20060918
  Transmission Date: 20061208
  Serious: Yes (Disabling)
  Sender: FDA-Public Use
  Company Number: None

PATIENT
  Age: 39 Year
  Sex: Female
  Weight: 77.1115 kg

DRUGS (1)
  1. LEVAQUIN [Suspect]
     Indication: BACTERIAL INFECTION
     Dosage: 500 MG    1 TABLET DAILY   PO
     Route: 048
     Dates: start: 20060721, end: 20060726

REACTIONS (5)
  - ARTHRALGIA [None]
  - CARPAL TUNNEL SYNDROME [None]
  - MUSCULOSKELETAL PAIN [None]
  - PAIN [None]
  - PAIN IN EXTREMITY [None]
